FAERS Safety Report 9108163 (Version 2)
Quarter: 2013Q1

REPORT INFORMATION
  Report Type: Spontaneous
  Country: DE (occurrence: DE)
  Receive Date: 20130221
  Receipt Date: 20130319
  Transmission Date: 20140127
  Serious: Yes (Other)
  Sender: FDA-Public Use
  Company Number: DE-JNJFOC-20130204086

PATIENT
  Age: 29 Year
  Sex: Male
  Weight: 114 kg

DRUGS (6)
  1. XEPLION [Suspect]
     Indication: SCHIZOPHRENIA, PARANOID TYPE
     Route: 030
     Dates: start: 20121231, end: 20121231
  2. XEPLION [Suspect]
     Indication: SCHIZOPHRENIA, PARANOID TYPE
     Route: 030
     Dates: start: 20121204, end: 20121204
  3. XEPLION [Suspect]
     Indication: SCHIZOPHRENIA, PARANOID TYPE
     Route: 030
     Dates: start: 20121114, end: 20121114
  4. XEPLION [Suspect]
     Indication: SCHIZOPHRENIA, PARANOID TYPE
     Route: 030
     Dates: start: 20121108, end: 20121108
  5. XEPLION [Suspect]
     Indication: SCHIZOPHRENIA, PARANOID TYPE
     Route: 030
     Dates: start: 20130128, end: 20130128
  6. ERGENYL CHRONO [Concomitant]
     Indication: SCHIZOPHRENIA, PARANOID TYPE
     Route: 048
     Dates: start: 20121015

REACTIONS (5)
  - Psychotic disorder [Recovered/Resolved]
  - Sinus bradycardia [Recovered/Resolved]
  - Cardiovascular disorder [Recovered/Resolved]
  - Stupor [Recovered/Resolved]
  - Dizziness [Recovered/Resolved]
